FAERS Safety Report 18675749 (Version 1)
Quarter: 2020Q4

REPORT INFORMATION
  Report Type: Spontaneous
  Country: AU (occurrence: AU)
  Receive Date: 20201229
  Receipt Date: 20201229
  Transmission Date: 20210114
  Serious: No
  Sender: FDA-Public Use
  Company Number: AU-LUPIN PHARMACEUTICALS INC.-2020-04949

PATIENT
  Age: 34 Year
  Sex: Female

DRUGS (12)
  1. SALBUTAMOL [Suspect]
     Active Substance: ALBUTEROL
     Indication: ASTHMA
     Dosage: UNK UNK, PRN  (METERED DOSE INHALERS; AS REQUIRED)
     Route: 065
  2. FLUTICASONE. [Suspect]
     Active Substance: FLUTICASONE
     Indication: ASTHMA
     Dosage: UNK UNK, PRN (METERED DOSE INHALERS; AS REQUIRED)
     Route: 065
  3. NICOTINE. [Suspect]
     Active Substance: NICOTINE
     Dosage: 21 MILLIGRAM (BY SIX WEEK OF ABSTINENCE, NRT STABILISED TO DAILY USAGE OF 24-HOUR PATCH)
     Route: 061
  4. OLANZAPINE. [Suspect]
     Active Substance: OLANZAPINE
     Indication: BIPOLAR DISORDER
     Dosage: 10 MILLIGRAM, QD
     Route: 065
  5. ESCITALOPRAM OXALATE. [Suspect]
     Active Substance: ESCITALOPRAM OXALATE
     Indication: BIPOLAR DISORDER
     Dosage: 20 MILLIGRAM, QD
     Route: 065
  6. NICOTINE. [Suspect]
     Active Substance: NICOTINE
     Dosage: 4 MILLIGRAM (BY WEEK 3 OF ABSTINENCE, DAILY USAGE WAS 6 GUM.)
     Route: 048
  7. NICOTINE. [Suspect]
     Active Substance: NICOTINE
     Dosage: 1 MILLIGRAM (BY WEEK 6 OF ABSTINENCE; DAILY USAGE WAS APPROXIMATELY 90 SPRAYS)
     Route: 048
  8. NICOTINE. [Suspect]
     Active Substance: NICOTINE
     Dosage: 15 MILLIGRAM (BY WEEK 3 OF ABSTINENCE, DAILY USAGE WAS 6 INHALATOR CARTRIDGES.)
     Route: 065
  9. NICOTINE. [Suspect]
     Active Substance: NICOTINE
     Dosage: 1 MILLIGRAM (BY WEEK 3 OF ABSTINENCE, DAILY USAGE WAS 43 ORAL SPRAY.)
     Route: 048
  10. NICOTINE. [Suspect]
     Active Substance: NICOTINE
     Indication: SMOKING CESSATION THERAPY
     Dosage: 21 MILLIGRAM (BY WEEK 3 OF ABSTINENCE, DAILY USAGE WAS 1 NICOTINE 24-HOUR PATCH.)
     Route: 061
  11. LITHIUM. [Suspect]
     Active Substance: LITHIUM
     Indication: BIPOLAR DISORDER
     Dosage: UNK
     Route: 065
  12. NICOTINE. [Suspect]
     Active Substance: NICOTINE
     Dosage: 4 MILLIGRAM (BY WEEK 3 OF ABSTINENCE, DAILY USAGE WAS 7 LOZENGES.)
     Route: 048

REACTIONS (2)
  - Exposure during pregnancy [Unknown]
  - Delivery [Unknown]
